FAERS Safety Report 8563604-0 (Version None)
Quarter: 2012Q3

REPORT INFORMATION
  Report Type: 
  Country: None (occurrence: None)
  Receive Date: 20120803
  Receipt Date: 20120725
  Transmission Date: 20120928
  Serious: Yes (Hospitalization, Other)
  Sender: FDA-Public Use
  Company Number: US-BIOGENIDEC-2012BI006295

PATIENT
  Sex: Female

DRUGS (2)
  1. ANESTHESIA [Concomitant]
  2. AVONEX [Suspect]
     Indication: MULTIPLE SCLEROSIS
     Route: 030
     Dates: start: 20031020

REACTIONS (8)
  - FALL [None]
  - ANAESTHETIC COMPLICATION [None]
  - PUBIS FRACTURE [None]
  - OSTEOPENIA [None]
  - HIP ARTHROPLASTY [None]
  - HIP FRACTURE [None]
  - FEMUR FRACTURE [None]
  - DEMENTIA [None]
